FAERS Safety Report 11936862 (Version 1)
Quarter: 2016Q1

REPORT INFORMATION
  Report Type: Spontaneous
  Country: US (occurrence: US)
  Receive Date: 20160121
  Receipt Date: 20160121
  Transmission Date: 20160526
  Serious: No
  Sender: FDA-Public Use
  Company Number: US-TARO-2015TAR00111

PATIENT
  Sex: Male
  Weight: 195.1 kg

DRUGS (7)
  1. ALLOPURINOL. [Concomitant]
     Active Substance: ALLOPURINOL
     Dosage: 300 MG, 1X/DAY
  2. BETAMETHASONE VALERATE CREAM USP 0.1% [Suspect]
     Active Substance: BETAMETHASONE VALERATE
     Indication: BURIED PENIS SYNDROME
     Dosage: 1 DOSAGE UNITS, UP TO 2X/DAY
     Route: 061
     Dates: start: 2012
  3. VALIUM [Concomitant]
     Active Substance: DIAZEPAM
     Dosage: 10 MG, 1X/DAY
  4. BETAMETHASONE VALERATE CREAM USP 0.1% [Suspect]
     Active Substance: BETAMETHASONE VALERATE
     Dosage: 1 DOSAGE UNITS, AS NEEDED
  5. NYSTATIN AND TRIAMCINOLONE ACETONIDE [Suspect]
     Active Substance: NYSTATIN\TRIAMCINOLONE ACETONIDE
     Indication: BURIED PENIS SYNDROME
     Dosage: 1 DOSAGE UNITS, UP TO 2X/DAY
     Route: 061
     Dates: start: 2013
  6. UNKNOWN PILL FOR SPASMS [Concomitant]
     Indication: MUSCLE SPASMS
     Dosage: UNK, 1X/DAY
  7. LOSARTAN. [Concomitant]
     Active Substance: LOSARTAN
     Dosage: 100 MG, 1X/DAY

REACTIONS (8)
  - Drug ineffective [Not Recovered/Not Resolved]
  - Genital injury [Not Recovered/Not Resolved]
  - Painful erection [Not Recovered/Not Resolved]
  - Dry skin [Not Recovered/Not Resolved]
  - Pruritus [Not Recovered/Not Resolved]
  - Product physical consistency issue [None]
  - Expired product administered [Not Recovered/Not Resolved]
  - Skin fissures [Not Recovered/Not Resolved]
